FAERS Safety Report 8155411-8 (Version None)
Quarter: 2012Q1

REPORT INFORMATION
  Report Type: 
  Country: None (occurrence: None)
  Receive Date: 20120222
  Receipt Date: 20120207
  Transmission Date: 20120608
  Serious: Yes (Other)
  Sender: FDA-Public Use
  Company Number: GB-RANBAXY-2010R1-40164

PATIENT
  Age: 30 Year
  Sex: Male

DRUGS (10)
  1. CEFTAZIDIME [Suspect]
     Indication: CYSTIC FIBROSIS
     Dosage: UNK
     Route: 065
  2. CLARITHROMYCIN [Suspect]
     Indication: CYSTIC FIBROSIS
     Dosage: UNK
     Route: 065
  3. AMOXICILLIN [Suspect]
     Indication: CYSTIC FIBROSIS
     Dosage: UNK
     Route: 065
  4. ERYTHROMYCIN [Suspect]
     Indication: CYSTIC FIBROSIS
     Dosage: UNK
     Route: 065
  5. TOBRAMYCIN [Suspect]
     Indication: CYSTIC FIBROSIS
     Dosage: UNK
     Route: 065
  6. SEPTRA [Suspect]
     Indication: CYSTIC FIBROSIS
  7. GENTAMICIN [Suspect]
     Indication: CYSTIC FIBROSIS
     Dosage: UNK
     Route: 065
  8. AZTREONAM [Suspect]
     Indication: CYSTIC FIBROSIS
     Dosage: UNK
     Route: 065
  9. MEROPENEM [Suspect]
     Indication: CYSTIC FIBROSIS
     Dosage: UNK
     Route: 065
  10. FLUCLOXACILLIN [Suspect]
     Indication: CYSTIC FIBROSIS
     Dosage: UNK
     Route: 065

REACTIONS (2)
  - DRUG ERUPTION [None]
  - DRUG HYPERSENSITIVITY [None]
